FAERS Safety Report 21902649 (Version 1)
Quarter: 2023Q1

REPORT INFORMATION
  Report Type: Spontaneous
  Country: US (occurrence: US)
  Receive Date: 20230124
  Receipt Date: 20230124
  Transmission Date: 20230417
  Serious: No
  Sender: FDA-Public Use
  Company Number: US-AMGEN-USASP2022228148

PATIENT
  Sex: Female

DRUGS (9)
  1. ENBREL [Suspect]
     Active Substance: ETANERCEPT
     Indication: Rheumatoid arthritis
     Dosage: 50 MILLIGRAM, QWK
     Route: 058
  2. PREDNISONE [Concomitant]
     Active Substance: PREDNISONE
     Dosage: UNK
  3. MONTELUKAST SODIUM [Concomitant]
     Active Substance: MONTELUKAST SODIUM
     Dosage: UNK
  4. FOLIC ACID [Concomitant]
     Active Substance: FOLIC ACID
     Dosage: UNK
  5. CEFDINIR [Concomitant]
     Active Substance: CEFDINIR
     Dosage: UNK
  6. FEXOFENADINE HCL [Concomitant]
     Active Substance: FEXOFENADINE HYDROCHLORIDE
     Dosage: UNK
  7. ASTEPRO [Concomitant]
     Active Substance: AZELASTINE HYDROCHLORIDE
     Dosage: UNK
  8. MELOXICAM [Concomitant]
     Active Substance: MELOXICAM
     Dosage: UNK
  9. AMOXICILLIN [Concomitant]
     Active Substance: AMOXICILLIN
     Dosage: UNK

REACTIONS (1)
  - Product dose omission issue [Unknown]
